FAERS Safety Report 7124516-2 (Version None)
Quarter: 2010Q4

REPORT INFORMATION
  Report Type: 
  Country: None (occurrence: None)
  Receive Date: 20101128
  Receipt Date: 20101125
  Transmission Date: 20110411
  Serious: Yes (Hospitalization)
  Sender: FDA-Public Use
  Company Number: AU-AMGEN-AUSCT2010003469

PATIENT
  Sex: Male

DRUGS (6)
  1. ROMIPLOSTIM [Suspect]
     Indication: IDIOPATHIC THROMBOCYTOPENIC PURPURA
     Dosage: 1 A?G/KG, QWK
     Route: 058
     Dates: start: 20101011
  2. PREDNISONE [Concomitant]
     Dosage: UNK UNK, QD
     Dates: start: 20100819, end: 20101101
  3. LEVOTHYROXINE SODIUM [Concomitant]
     Dosage: 75 A?G, QD
     Route: 048
     Dates: start: 20070801
  4. OMEPRAZOLE [Concomitant]
     Dosage: UNK
     Dates: start: 20010101
  5. CALCIUM [Concomitant]
     Dosage: UNK UNK, BID
     Route: 048
     Dates: start: 20070816
  6. VITAMIN D3 [Concomitant]

REACTIONS (1)
  - SENSORY DISTURBANCE [None]
